FAERS Safety Report 18333363 (Version 4)
Quarter: 2020Q4

REPORT INFORMATION
  Report Type: Spontaneous
  Country: CO (occurrence: CO)
  Receive Date: 20201001
  Receipt Date: 20201026
  Transmission Date: 20210113
  Serious: Yes (Other)
  Sender: FDA-Public Use
  Company Number: CO-ADVANZ PHARMA-202009008921

PATIENT

DRUGS (5)
  1. VITAMIN C, ZINC [Concomitant]
  2. CLEMASTINE [Suspect]
     Active Substance: CLEMASTINE
     Indication: PRODUCT USED FOR UNKNOWN INDICATION
     Dosage: UNK
     Route: 030
     Dates: start: 2020
  3. HYDROXYCHLOROQUINE SULFATE (AUTHORIZED GENERIC),PLAQUENIL [Suspect]
     Active Substance: HYDROXYCHLOROQUINE SULFATE
     Indication: ARTHRALGIA
     Dosage: 200 MG, QD
     Route: 048
     Dates: start: 20200806, end: 20200904
  4. BIOTINE [Concomitant]
  5. DEFEROL [Concomitant]

REACTIONS (18)
  - Eosinophilic cellulitis [Recovering/Resolving]
  - Chills [Unknown]
  - Skin exfoliation [Not Recovered/Not Resolved]
  - Rash [Recovering/Resolving]
  - Skin discolouration [Not Recovered/Not Resolved]
  - Condition aggravated [Unknown]
  - Rash macular [Unknown]
  - Pruritus [Recovering/Resolving]
  - Urticaria [Recovering/Resolving]
  - Erythema [Unknown]
  - Roseola [Unknown]
  - Asthenia [Unknown]
  - Body temperature increased [Unknown]
  - Pain of skin [Unknown]
  - Condition aggravated [Unknown]
  - Skin lesion [Recovering/Resolving]
  - Malaise [Unknown]
  - Headache [Recovered/Resolved]

NARRATIVE: CASE EVENT DATE: 2020
